FAERS Safety Report 8287985-0 (Version None)
Quarter: 2012Q2

REPORT INFORMATION
  Report Type: 
  Country: None (occurrence: None)
  Receive Date: 20120416
  Receipt Date: 20120404
  Transmission Date: 20120825
  Serious: Yes (Other)
  Sender: FDA-Public Use
  Company Number: JP-BAYER-2012-033717

PATIENT
  Age: 69 Year
  Sex: Male

DRUGS (4)
  1. ASPIRIN [Suspect]
     Indication: CEREBRAL INFARCTION
     Dosage: 100 MG, BID
     Route: 048
     Dates: start: 20110916, end: 20110918
  2. NOVO HEPARIN CALCIUM [Suspect]
     Dosage: DAILY DOSE 1500 U
     Route: 042
     Dates: start: 20110916, end: 20110918
  3. RADICUT [Concomitant]
     Indication: CEREBRAL INFARCTION
     Dosage: 30 MG, BID
     Route: 042
     Dates: start: 20110915, end: 20110924
  4. NOVO HEPARIN CALCIUM [Suspect]
     Indication: CEREBRAL INFARCTION
     Dosage: DAILY DOSE 5000 U
     Route: 042
     Dates: start: 20110915, end: 20110915

REACTIONS (2)
  - MUSCLE HAEMORRHAGE [None]
  - COMPARTMENT SYNDROME [None]
